FAERS Safety Report 24344559 (Version 1)
Quarter: 2024Q3

REPORT INFORMATION
  Report Type: Spontaneous
  Country: US (occurrence: US)
  Receive Date: 20240920
  Receipt Date: 20240920
  Transmission Date: 20241017
  Serious: No
  Sender: AMGEN
  Company Number: US-AMGEN-USASP2024187458

PATIENT

DRUGS (1)
  1. KANJINTI [Suspect]
     Active Substance: TRASTUZUMAB-ANNS
     Indication: Breast cancer
     Dosage: 375 MILLIGRAM
     Route: 065

REACTIONS (3)
  - Blood creatinine increased [Unknown]
  - SARS-CoV-2 test positive [Unknown]
  - Malaise [Unknown]

NARRATIVE: CASE EVENT DATE: 20240905
